FAERS Safety Report 7918985-5 (Version None)
Quarter: 2011Q4

REPORT INFORMATION
  Report Type: 
  Country: None (occurrence: None)
  Receive Date: 20111116
  Receipt Date: 20111107
  Transmission Date: 20120403
  Serious: Yes (Other)
  Sender: FDA-Public Use
  Company Number: US-ASTRAZENECA-2011SE67137

PATIENT
  Sex: Female

DRUGS (3)
  1. SEROQUEL [Suspect]
     Route: 048
  2. CLOZARIL [Suspect]
  3. CLOZARIL [Suspect]

REACTIONS (6)
  - CONFUSIONAL STATE [None]
  - DISORIENTATION [None]
  - HALLUCINATION, AUDITORY [None]
  - SOCIAL AVOIDANT BEHAVIOUR [None]
  - DELIRIUM [None]
  - PSYCHOTIC DISORDER [None]
